FAERS Safety Report 6806240-6 (Version None)
Quarter: 2010Q2

REPORT INFORMATION
  Report Type: 
  Country: None (occurrence: None)
  Receive Date: 20100629
  Receipt Date: 20080115
  Transmission Date: 20101027
  Serious: Yes (Hospitalization)
  Sender: FDA-Public Use
  Company Number: US-PFIZER INC-2008005435

PATIENT
  Sex: Female

DRUGS (3)
  1. ALPRAZOLAM [Suspect]
     Indication: TENSION
     Dosage: DAILY
     Route: 048
     Dates: start: 20070101, end: 20071001
  2. BUPROPION HYDROCHLORIDE [Suspect]
     Indication: DEPRESSION
     Route: 048
     Dates: start: 20070101
  3. EFFEXOR [Concomitant]

REACTIONS (1)
  - GRAND MAL CONVULSION [None]
